FAERS Safety Report 13718694 (Version 1)
Quarter: 2017Q3

REPORT INFORMATION
  Report Type: Spontaneous
  Country: US (occurrence: US)
  Receive Date: 20170705
  Receipt Date: 20170705
  Transmission Date: 20171127
  Serious: No
  Sender: FDA-Public Use
  Company Number: US-BIOGEN-2017BI00424632

PATIENT
  Sex: Female

DRUGS (1)
  1. AVONEX [Suspect]
     Active Substance: INTERFERON BETA-1A
     Indication: MULTIPLE SCLEROSIS
     Route: 065
     Dates: start: 20121016

REACTIONS (6)
  - Influenza [Recovered/Resolved]
  - Memory impairment [Unknown]
  - Migraine [Unknown]
  - Nausea [Unknown]
  - Blood iron decreased [Unknown]
  - Paraesthesia [Unknown]
